FAERS Safety Report 4946783-3 (Version None)
Quarter: 2006Q1

REPORT INFORMATION
  Report Type: 
  Country: None (occurrence: None)
  Receive Date: 20060201
  Receipt Date: 20051218
  Transmission Date: 20060701
  Serious: No
  Sender: FDA-Public Use
  Company Number: 2005PV005998

PATIENT
  Age: 48 Year
  Sex: Female
  Weight: 95.2554 kg

DRUGS (2)
  1. BYETTA [Suspect]
     Indication: DIABETES MELLITUS NON-INSULIN-DEPENDENT
     Dosage: 5 MCG BID SC
     Route: 058
     Dates: start: 20051101, end: 20051218
  2. GLUCOPHAGE [Concomitant]

REACTIONS (6)
  - ERYTHEMA [None]
  - JOINT STIFFNESS [None]
  - JOINT SWELLING [None]
  - OEDEMA PERIPHERAL [None]
  - PRURITUS [None]
  - URTICARIA GENERALISED [None]
